FAERS Safety Report 14940659 (Version 14)
Quarter: 2020Q1

REPORT INFORMATION
  Report Type: Report from Study
  Country: US (occurrence: US)
  Receive Date: 20180525
  Receipt Date: 20200320
  Transmission Date: 20200409
  Serious: Yes (Hospitalization, Other)
  Sender: FDA-Public Use
  Company Number: US-ACTELION-A-NJ2018-171311

PATIENT
  Age: 76 Year
  Sex: Female
  Weight: 56.69 kg

DRUGS (18)
  1. LEVOTHYROXINE. [Concomitant]
     Active Substance: LEVOTHYROXINE
     Dosage: 50 MCG, QD
     Route: 048
  2. MULTIVITAMIN [Concomitant]
     Active Substance: VITAMINS
     Dosage: UNK
  3. ALBUTEROL. [Suspect]
     Active Substance: ALBUTEROL
     Indication: PRODUCT USED FOR UNKNOWN INDICATION
     Route: 055
  4. PLAQUENIL [Concomitant]
     Active Substance: HYDROXYCHLOROQUINE SULFATE
     Dosage: 200 MG, BID
     Route: 048
  5. LORATADINE. [Concomitant]
     Active Substance: LORATADINE
     Dosage: 10 MG, QD
     Route: 048
  6. LORAZEPAM. [Concomitant]
     Active Substance: LORAZEPAM
     Dosage: 0.5 MG, PRN
  7. VITAMIN D3 [Concomitant]
     Active Substance: CHOLECALCIFEROL
     Dosage: 2000 U, QD
  8. OPSUMIT [Suspect]
     Active Substance: MACITENTAN
     Indication: PULMONARY ARTERIAL HYPERTENSION
     Dosage: 10 MG, QD
     Route: 048
     Dates: start: 20180126
  9. PRAVACHOL [Concomitant]
     Active Substance: PRAVASTATIN SODIUM
     Dosage: 40 MG, QD
     Route: 048
  10. BABY ASPIRIN [Concomitant]
     Active Substance: ASPIRIN
     Dosage: 81 MG, QD
     Route: 048
  11. LEVALBUTEROL HCL [Concomitant]
     Active Substance: LEVALBUTEROL HYDROCHLORIDE
     Route: 055
  12. HYDROCHLOROTHIAZIDE. [Concomitant]
     Active Substance: HYDROCHLOROTHIAZIDE
     Dosage: 12.5 MG, QD
     Route: 048
  13. TRAZODONE [Concomitant]
     Active Substance: TRAZODONE HYDROCHLORIDE
     Dosage: 50 MG, QD
  14. SILDENAFIL. [Suspect]
     Active Substance: SILDENAFIL
     Indication: PRODUCT USED FOR UNKNOWN INDICATION
     Dosage: 20 MG, TID
     Route: 065
     Dates: start: 201801
  15. VITAMIN B12 [Concomitant]
     Active Substance: CYANOCOBALAMIN
     Dosage: 1000 MCG, QD
  16. COQ10 [Concomitant]
     Active Substance: UBIDECARENONE
     Dosage: 100 MG, QD
  17. LOSARTAN. [Concomitant]
     Active Substance: LOSARTAN
     Dosage: 100 MG, QD
     Route: 048
  18. PROTONIX [Concomitant]
     Active Substance: PANTOPRAZOLE SODIUM
     Dosage: 20 MG, QD
     Route: 048

REACTIONS (27)
  - Atrial fibrillation [Not Recovered/Not Resolved]
  - Eye disorder [Unknown]
  - Vitreous floaters [Unknown]
  - Sinus congestion [Unknown]
  - Heart rate increased [Not Recovered/Not Resolved]
  - Hepatic enzyme abnormal [Unknown]
  - Sinusitis [Unknown]
  - Oropharyngeal pain [Unknown]
  - Blood pressure abnormal [Unknown]
  - Nasal congestion [Unknown]
  - Productive cough [Unknown]
  - Rhinorrhoea [Unknown]
  - Hypoacusis [Not Recovered/Not Resolved]
  - Parosmia [Unknown]
  - Eye haemorrhage [Unknown]
  - Vision blurred [Not Recovered/Not Resolved]
  - Cough [Unknown]
  - Peripheral swelling [Unknown]
  - Anxiety [Unknown]
  - Frequent bowel movements [Unknown]
  - Bowel movement irregularity [Unknown]
  - Diarrhoea [Recovering/Resolving]
  - Malaise [Unknown]
  - Taste disorder [Unknown]
  - Otitis media [Not Recovered/Not Resolved]
  - Drug hypersensitivity [Unknown]
  - Palpitations [Unknown]

NARRATIVE: CASE EVENT DATE: 20180317
